FAERS Safety Report 6702819-0 (Version None)
Quarter: 2010Q2

REPORT INFORMATION
  Report Type: 
  Country: None (occurrence: None)
  Receive Date: 20100429
  Receipt Date: 20100429
  Transmission Date: 20101027
  Serious: Yes (Death)
  Sender: FDA-Public Use
  Company Number: None

PATIENT
  Age: 73 Year
  Sex: Male
  Weight: 82 kg

DRUGS (2)
  1. NOVOSEVEN RT [Suspect]
     Indication: AORTIC SURGERY
     Dosage: 5 MG ONCE IV BOLUS ONCE
     Route: 040
     Dates: start: 20100112, end: 20100112
  2. NOVOSEVEN RT [Suspect]
     Indication: HAEMOSTASIS
     Dosage: 5 MG ONCE IV BOLUS ONCE
     Route: 040
     Dates: start: 20100112, end: 20100112

REACTIONS (1)
  - ISCHAEMIC STROKE [None]
